FAERS Safety Report 19641861 (Version 1)
Quarter: 2021Q3

REPORT INFORMATION
  Report Type: Spontaneous
  Country: US (occurrence: US)
  Receive Date: 20210731
  Receipt Date: 20210731
  Transmission Date: 20211014
  Serious: Yes (Hospitalization)
  Sender: FDA-Public Use
  Company Number: US-DRREDDYS-LIT/USA/21/0138340

PATIENT
  Age: 58 Year
  Sex: Male

DRUGS (7)
  1. TIZANIDINE HYDROCHLORIDE. [Suspect]
     Active Substance: TIZANIDINE HYDROCHLORIDE
     Indication: CENTRAL PAIN SYNDROME
  2. VENLAFAXINE HYDROCHLORIDE. [Suspect]
     Active Substance: VENLAFAXINE HYDROCHLORIDE
     Indication: CENTRAL PAIN SYNDROME
  3. GABAPENTIN. [Suspect]
     Active Substance: GABAPENTIN
     Dosage: 1200MG AT NIGHT
  4. TRAMADOL. [Suspect]
     Active Substance: TRAMADOL
     Indication: CENTRAL PAIN SYNDROME
     Dosage: 50MG IN EVERY 8H AS NEEDED
  5. ACETAMINOPHEN. [Suspect]
     Active Substance: ACETAMINOPHEN
     Indication: CENTRAL PAIN SYNDROME
     Dosage: HYDROCODONE 10MG/PARACETAMOL ACETAMINOPHEN 325MG EVERY 4H AS NEEDED
  6. GABAPENTIN. [Suspect]
     Active Substance: GABAPENTIN
     Indication: CENTRAL PAIN SYNDROME
     Dosage: 600 MG IN THE MORNING AND AFTERNOON
  7. LIDOCAINE. [Suspect]
     Active Substance: LIDOCAINE
     Indication: CENTRAL PAIN SYNDROME
     Dosage: CREAM 3 TIMES A DAY AS NEEDED

REACTIONS (1)
  - Drug ineffective [Unknown]
